FAERS Safety Report 23668207 (Version 1)
Quarter: 2024Q1

REPORT INFORMATION
  Report Type: Spontaneous
  Country: CN (occurrence: CN)
  Receive Date: 20240325
  Receipt Date: 20240325
  Transmission Date: 20240410
  Serious: Yes (Hospitalization, Other)
  Sender: FDA-Public Use
  Company Number: CN-BRACCO-2024CN01268

PATIENT
  Age: 42 Year
  Sex: Female

DRUGS (4)
  1. SULPHUR HEXAFLUORIDE [Suspect]
     Active Substance: SULFUR HEXAFLUORIDE
     Indication: Ultrasound breast
     Dosage: 59 MG, SINGLE
     Route: 042
     Dates: start: 20240308, end: 20240308
  2. SULPHUR HEXAFLUORIDE [Suspect]
     Active Substance: SULFUR HEXAFLUORIDE
     Indication: Ultrasound breast
     Dosage: 59 MG, SINGLE
     Route: 042
     Dates: start: 20240308, end: 20240308
  3. SULPHUR HEXAFLUORIDE [Suspect]
     Active Substance: SULFUR HEXAFLUORIDE
     Indication: Ultrasound breast
     Dosage: 59 MG, SINGLE
     Route: 042
     Dates: start: 20240308, end: 20240308
  4. SODIUM CHLORIDE [Concomitant]
     Active Substance: SODIUM CHLORIDE
     Indication: Ultrasound breast
     Dosage: 10 ML, SINGLE
     Route: 042
     Dates: start: 20240308, end: 20240308

REACTIONS (2)
  - Syncope [Recovering/Resolving]
  - Vomiting [Recovering/Resolving]

NARRATIVE: CASE EVENT DATE: 20240308
